FAERS Safety Report 5658100-4 (Version None)
Quarter: 2008Q1

REPORT INFORMATION
  Report Type: 
  Country: None (occurrence: None)
  Receive Date: 20080310
  Receipt Date: 20070220
  Transmission Date: 20080703
  Serious: No
  Sender: FDA-Public Use
  Company Number: US-BAYER-200615063BCC

PATIENT
  Age: 70 Year
  Sex: Female
  Weight: 75 kg

DRUGS (4)
  1. ALEVE [Suspect]
     Indication: ARTHRALGIA
     Dosage: TOTAL DAILY DOSE: 660 MG  UNIT DOSE: 220 MG
     Route: 048
     Dates: start: 20061211
  2. ALEVE [Suspect]
     Route: 048
  3. CENTRUM [Concomitant]
  4. NATURAL CALCIUM WITH VITAMIN D [Concomitant]

REACTIONS (12)
  - ABDOMINAL PAIN UPPER [None]
  - APPETITE DISORDER [None]
  - ARTHRALGIA [None]
  - CONSTIPATION [None]
  - DIZZINESS [None]
  - DYSGEUSIA [None]
  - ERUCTATION [None]
  - GASTROINTESTINAL PAIN [None]
  - GASTROOESOPHAGEAL REFLUX DISEASE [None]
  - HEART RATE INCREASED [None]
  - MUSCULOSKELETAL PAIN [None]
  - PAIN IN JAW [None]
